FAERS Safety Report 5391656-8 (Version None)
Quarter: 2007Q3

REPORT INFORMATION
  Report Type: 
  Country: None (occurrence: None)
  Receive Date: 20070719
  Receipt Date: 20070705
  Transmission Date: 20080115
  Serious: Yes (Life-Threatening, Other)
  Sender: FDA-Public Use
  Company Number: AT-SHR-AT-2007-025392

PATIENT
  Age: 53 Year
  Sex: Male
  Weight: 84 kg

DRUGS (3)
  1. SOTALOL HYDROCHLORIDE [Suspect]
     Dosage: BLUE
     Route: 048
     Dates: start: 19960101, end: 20070101
  2. SOTALOL HYDROCHLORIDE [Suspect]
     Dosage: WHITE
     Route: 048
     Dates: start: 20070601
  3. SOTALOL HYDROCHLORIDE [Suspect]
     Dosage: WHITE (X 5DAYS)
     Route: 048
     Dates: start: 20070601, end: 20070101

REACTIONS (4)
  - ARRHYTHMIA [None]
  - DYSPNOEA [None]
  - GENERAL PHYSICAL HEALTH DETERIORATION [None]
  - MALAISE [None]
